FAERS Safety Report 5416225-2 (Version None)
Quarter: 2007Q3

REPORT INFORMATION
  Report Type: 
  Country: None (occurrence: None)
  Receive Date: 20070718
  Receipt Date: 20070201
  Transmission Date: 20080115
  Serious: Yes (Hospitalization, Other)
  Sender: FDA-Public Use
  Company Number: 2007009015

PATIENT
  Age: 85 Year
  Sex: Male

DRUGS (2)
  1. CELEBREX [Suspect]
  2. ADVIL [Suspect]
     Indication: BACK PAIN

REACTIONS (2)
  - BACK PAIN [None]
  - GASTROINTESTINAL HAEMORRHAGE [None]
